FAERS Safety Report 18536240 (Version 1)
Quarter: 2020Q4

REPORT INFORMATION
  Report Type: Spontaneous
  Country: JP (occurrence: JP)
  Receive Date: 20201124
  Receipt Date: 20201124
  Transmission Date: 20210114
  Serious: Yes (Death, Hospitalization, Other)
  Sender: FDA-Public Use
  Company Number: JP-ROCHE-2715143

PATIENT
  Age: 77 Year
  Sex: Male
  Weight: 51 kg

DRUGS (10)
  1. OMEPRAZOLE. [Concomitant]
     Active Substance: OMEPRAZOLE
     Dosage: DOSAGE IS UNCERTAIN.
     Route: 065
     Dates: start: 20200525
  2. XELODA [Suspect]
     Active Substance: CAPECITABINE
     Indication: COLON CANCER
     Route: 048
     Dates: start: 20200514, end: 20200518
  3. ELPLAT [Suspect]
     Active Substance: OXALIPLATIN
     Indication: COLON CANCER
     Route: 041
     Dates: start: 20200514
  4. MIYA-BM [Concomitant]
     Active Substance: CLOSTRIDIUM BUTYRICUM SPORES STRAIN M-55
     Route: 048
     Dates: start: 20200526
  5. TAZOPIPE [Concomitant]
     Active Substance: PIPERACILLIN SODIUM\TAZOBACTAM SODIUM
     Dosage: DOSAGE IS UNCERTAIN.
     Route: 065
     Dates: start: 20200526
  6. XYLOCAINE [Concomitant]
     Active Substance: LIDOCAINE HYDROCHLORIDE
     Dosage: DOSAGE IS UNCERTAIN.
     Route: 065
     Dates: start: 20200525
  7. PROMAC (JAPAN) [Concomitant]
     Dosage: DOSAGE IS UNCERTAIN.
     Route: 065
     Dates: start: 20200525
  8. DECADRON [Concomitant]
     Active Substance: DEXAMETHASONE
     Dosage: 8MG/DAY
     Route: 065
     Dates: start: 20200514, end: 20200515
  9. XARELTO [Concomitant]
     Active Substance: RIVAROXABAN
     Route: 048
     Dates: start: 20200514
  10. PAREPLUS [Concomitant]
     Active Substance: AMINO ACIDS\DEXTROSE\ELECTROLYTES NOS\VITAMINS
     Dosage: DOSAGE IS UNCERTAIN.
     Route: 065

REACTIONS (8)
  - Stomatitis [Unknown]
  - Somnolence [Unknown]
  - Pancytopenia [Fatal]
  - Myelosuppression [Fatal]
  - Respiratory acidosis [Unknown]
  - Decreased appetite [Unknown]
  - Diarrhoea [Unknown]
  - Disseminated intravascular coagulation [Fatal]

NARRATIVE: CASE EVENT DATE: 20200517
